FAERS Safety Report 19268057 (Version 1)
Quarter: 2021Q2

REPORT INFORMATION
  Report Type: Spontaneous
  Country: ES (occurrence: ES)
  Receive Date: 20210518
  Receipt Date: 20210518
  Transmission Date: 20210717
  Serious: Yes (Hospitalization, Other)
  Sender: FDA-Public Use
  Company Number: ES-SUN PHARMACEUTICAL INDUSTRIES LTD-2021R1-293945

PATIENT
  Age: 44 Year
  Sex: Female

DRUGS (1)
  1. DULOXETINE. [Suspect]
     Active Substance: DULOXETINE
     Indication: PRODUCT USED FOR UNKNOWN INDICATION
     Dosage: 30 MG , UNK (3 BOXES)
     Route: 065

REACTIONS (6)
  - Opsoclonus myoclonus [Recovered/Resolved]
  - Suicidal ideation [Unknown]
  - Toxicity to various agents [Unknown]
  - Hallucination, visual [Recovered/Resolved]
  - Intentional overdose [Unknown]
  - Delirium [Recovered/Resolved]
